FAERS Safety Report 12372798 (Version 1)
Quarter: 2016Q2

REPORT INFORMATION
  Report Type: Spontaneous
  Country: US (occurrence: US)
  Receive Date: 20160516
  Receipt Date: 20160516
  Transmission Date: 20160815
  Serious: No
  Sender: FDA-Public Use
  Company Number: US-FERRINGPH-2016FE00999

PATIENT
  Age: 27 Year
  Sex: Female
  Weight: 81.63 kg

DRUGS (2)
  1. CERVIDIL [Suspect]
     Active Substance: DINOPROSTONE
     Indication: INDUCED LABOUR
     Dosage: UNK, ONCE/SINGLE FOR 12 HOURS
     Route: 067
     Dates: start: 201006, end: 201006
  2. PITOCIN [Concomitant]
     Active Substance: OXYTOCIN

REACTIONS (1)
  - Uterine hyperstimulation [Unknown]

NARRATIVE: CASE EVENT DATE: 201006
